FAERS Safety Report 19273871 (Version 1)
Quarter: 2021Q2

REPORT INFORMATION
  Report Type: Spontaneous
  Country: FR (occurrence: FR)
  Receive Date: 20210519
  Receipt Date: 20210519
  Transmission Date: 20210717
  Serious: Yes (Hospitalization, Other)
  Sender: FDA-Public Use
  Company Number: FR-AUROBINDO-AUR-APL-2020-052308

PATIENT
  Age: 71 Year
  Sex: Male
  Weight: 82 kg

DRUGS (14)
  1. FLUOROURACIL. [Suspect]
     Active Substance: FLUOROURACIL
     Indication: DUCTAL ADENOCARCINOMA OF PANCREAS
     Dosage: UNK
     Route: 065
     Dates: start: 20190423
  2. MORPHINE [Concomitant]
     Active Substance: MORPHINE
     Indication: BACK PAIN
     Dosage: 1.6 MG/H CONTINOUS 4 MG BOLUS
     Route: 042
     Dates: start: 20190326, end: 20190409
  3. ATROPINE. [Concomitant]
     Active Substance: ATROPINE
     Indication: PROPHYLAXIS OF NAUSEA AND VOMITING
     Dosage: 0.25 MILLIGRAM, ONCE A DAY
     Route: 042
     Dates: start: 20190405, end: 20190405
  4. FLUOROURACIL. [Suspect]
     Active Substance: FLUOROURACIL
     Dosage: UNK
     Route: 065
     Dates: start: 20190507
  5. ONDANSETRON [Concomitant]
     Active Substance: ONDANSETRON
     Indication: PROPHYLAXIS OF NAUSEA AND VOMITING
     Dosage: 8 MILLIGRAM, ONCE A DAY
     Route: 042
     Dates: start: 20190405, end: 20190405
  6. IRINOTECAN [Suspect]
     Active Substance: IRINOTECAN
     Dosage: 351 MILLIGRAM, ONCE A DAY
     Route: 042
     Dates: start: 20190405, end: 20190405
  7. FOSAPREPITANT [Concomitant]
     Active Substance: FOSAPREPITANT
     Indication: PROPHYLAXIS OF NAUSEA AND VOMITING
     Dosage: 125 MILLIGRAM, ONCE A DAY
     Route: 042
     Dates: start: 20190405, end: 20190405
  8. IRINOTECAN [Suspect]
     Active Substance: IRINOTECAN
     Dosage: UNK
     Route: 065
     Dates: start: 20190507
  9. LEUCOVORIN. [Suspect]
     Active Substance: LEUCOVORIN
     Dosage: 390 MILLIGRAM, ONCE A DAY (DAILY)
     Route: 042
     Dates: start: 20190405, end: 20190405
  10. LEUCOVORIN. [Suspect]
     Active Substance: LEUCOVORIN
     Indication: DUCTAL ADENOCARCINOMA OF PANCREAS
     Dosage: UNK
     Route: 065
     Dates: start: 20190423
  11. LEUCOVORIN. [Suspect]
     Active Substance: LEUCOVORIN
     Dosage: UNK
     Route: 042
     Dates: start: 20190507
  12. IRINOTECAN [Suspect]
     Active Substance: IRINOTECAN
     Indication: DUCTAL ADENOCARCINOMA OF PANCREAS
     Dosage: UNK UNK, ONCE A DAY
     Route: 065
     Dates: start: 20190423
  13. KETOPROFEN. [Concomitant]
     Active Substance: KETOPROFEN
     Indication: BACK PAIN
     Dosage: 200 MILLIGRAM, ONCE A DAY(100 MG TWICE DAILY)
     Route: 048
     Dates: start: 20190326
  14. FLUOROURACIL. [Suspect]
     Active Substance: FLUOROURACIL
     Dosage: 5500 MILLIGRAM, ONCE A DAY
     Route: 042
     Dates: start: 20190405, end: 20190405

REACTIONS (1)
  - General physical health deterioration [Recovered/Resolved]

NARRATIVE: CASE EVENT DATE: 20190406
